FAERS Safety Report 23096257 (Version 1)
Quarter: 2023Q4

REPORT INFORMATION
  Report Type: Spontaneous
  Country: US (occurrence: US)
  Receive Date: 20231023
  Receipt Date: 20231023
  Transmission Date: 20240109
  Serious: Yes (Death, Life-Threatening, Hospitalization, Other)
  Sender: FDA-Public Use
  Company Number: US-MLMSERVICE-20231005-4584216-1

PATIENT

DRUGS (4)
  1. PREDNISONE [Suspect]
     Active Substance: PREDNISONE
     Indication: Pulmonary alveolar haemorrhage
     Dosage: HIGH DOSE
     Route: 065
  2. CYCLOPHOSPHAMIDE [Suspect]
     Active Substance: CYCLOPHOSPHAMIDE
     Indication: Pulmonary alveolar haemorrhage
     Dosage: UNKNOWN
     Route: 065
  3. RUXOLITINIB [Suspect]
     Active Substance: RUXOLITINIB
     Indication: Pulmonary alveolar haemorrhage
     Dosage: UNKNOWN
     Route: 065
  4. RITUXIMAB [Suspect]
     Active Substance: RITUXIMAB
     Indication: Pulmonary alveolar haemorrhage
     Dosage: UNKNOWN
     Route: 065

REACTIONS (3)
  - Pneumonia fungal [Fatal]
  - Septic shock [Fatal]
  - Aspergillus infection [Fatal]
